FAERS Safety Report 12859619 (Version 9)
Quarter: 2019Q2

REPORT INFORMATION
  Report Type: Spontaneous
  Country: US (occurrence: US)
  Receive Date: 20161018
  Receipt Date: 20190626
  Transmission Date: 20190711
  Serious: Yes (Hospitalization)
  Sender: FDA-Public Use
  Company Number: US-ACTELION-A-US2016-143636

PATIENT
  Age: 62 Year
  Sex: Female
  Weight: 90.7 kg

DRUGS (3)
  1. OPSUMIT [Suspect]
     Active Substance: MACITENTAN
     Indication: PULMONARY HYPERTENSION
     Dosage: 10 MG, QD
     Route: 048
     Dates: start: 20160901
  2. TYVASO [Concomitant]
     Active Substance: TREPROSTINIL
     Dosage: 12 BREATHS INH QID
     Route: 045
     Dates: start: 20160315
  3. TADALAFIL. [Concomitant]
     Active Substance: TADALAFIL

REACTIONS (17)
  - Renal failure [Unknown]
  - Respiratory distress [Unknown]
  - Rehabilitation therapy [Recovered/Resolved]
  - Pneumonia [Unknown]
  - Abdominal pain [Recovered/Resolved]
  - Pulmonary hypertension [Unknown]
  - Chills [Recovered/Resolved]
  - Atrial fibrillation [Unknown]
  - Cholecystitis acute [Recovered/Resolved]
  - Cholecystitis [Recovered/Resolved]
  - Back pain [Recovered/Resolved]
  - Dialysis [Unknown]
  - Unevaluable event [Unknown]
  - Cardiac failure [Unknown]
  - Headache [Recovered/Resolved]
  - Cholecystectomy [Unknown]
  - Cardiac failure congestive [Unknown]

NARRATIVE: CASE EVENT DATE: 20160926
